FAERS Safety Report 23862314 (Version 1)
Quarter: 2024Q2

REPORT INFORMATION
  Report Type: Spontaneous
  Country: CA (occurrence: CA)
  Receive Date: 20240516
  Receipt Date: 20240516
  Transmission Date: 20240715
  Serious: Yes (Hospitalization, Other)
  Sender: FDA-Public Use
  Company Number: CA-MLMSERVICE-20240429-PI044199-00113-1

PATIENT
  Age: 75 Day

DRUGS (1)
  1. CYANOCOBALAMIN [Suspect]
     Active Substance: CYANOCOBALAMIN
     Indication: Vitamin supplementation
     Route: 030

REACTIONS (3)
  - Immune reconstitution inflammatory syndrome [Unknown]
  - Neonatal respiratory distress syndrome [Recovered/Resolved]
  - Interstitial lung disease [Recovered/Resolved]
